FAERS Safety Report 13612076 (Version 1)
Quarter: 2017Q2

REPORT INFORMATION
  Report Type: Spontaneous
  Country: US (occurrence: US)
  Receive Date: 20170605
  Receipt Date: 20170605
  Transmission Date: 20170830
  Serious: Yes (Other)
  Sender: FDA-Public Use
  Company Number: US-MYLANLABS-2017M1032603

PATIENT

DRUGS (1)
  1. RISPERIDONE TABLETS, USP [Suspect]
     Active Substance: RISPERIDONE
     Indication: DELUSIONAL DISORDER, UNSPECIFIED TYPE
     Dosage: 6 MG, HS
     Dates: start: 201703, end: 20170528

REACTIONS (4)
  - Weight increased [Recovered/Resolved]
  - Constipation [Recovered/Resolved]
  - Suicidal ideation [Recovered/Resolved]
  - Depression [Recovered/Resolved]

NARRATIVE: CASE EVENT DATE: 201704
